FAERS Safety Report 8534945-8 (Version None)
Quarter: 2012Q3

REPORT INFORMATION
  Report Type: 
  Country: None (occurrence: None)
  Receive Date: 20120724
  Receipt Date: 20120712
  Transmission Date: 20120928
  Serious: Yes (Hospitalization)
  Sender: FDA-Public Use
  Company Number: DE-ABBOTT-12P-062-0934911-00

PATIENT
  Sex: Male
  Weight: 84 kg

DRUGS (10)
  1. LEUPROLIDE ACETATE [Suspect]
     Route: 058
     Dates: start: 20100414
  2. MICTONORM [Concomitant]
     Indication: LOWER URINARY TRACT SYMPTOMS
     Route: 065
     Dates: start: 20050131, end: 20050831
  3. FINURAL [Concomitant]
     Indication: LOWER URINARY TRACT SYMPTOMS
     Route: 065
     Dates: start: 20080414, end: 20090701
  4. FERROUS SULFATE TAB [Concomitant]
     Indication: ANAEMIA
     Route: 065
     Dates: start: 20090805, end: 20090925
  5. FINURAL [Concomitant]
     Indication: HYPERTONIC BLADDER
  6. LEUPROLIDE ACETATE [Suspect]
     Route: 058
     Dates: start: 20091019, end: 20100414
  7. LEUPROLIDE ACETATE [Suspect]
     Indication: PROSTATE CANCER
     Route: 058
     Dates: start: 20040809, end: 20090420
  8. MICTONORM [Concomitant]
     Indication: HYPERTONIC BLADDER
  9. LEUPROLIDE ACETATE [Suspect]
     Indication: PROSTATE CANCER
     Route: 058
     Dates: start: 20090420, end: 20091019
  10. IRBESARTAN AND HYDROCHLOROTHIAZIDE [Concomitant]
     Indication: HYPERTENSION
     Dosage: IRBESARTAN PLUS HCT, 150/12.5
     Route: 048
     Dates: start: 19990101

REACTIONS (7)
  - HYPERTONIC BLADDER [None]
  - HAEMATURIA [None]
  - CORONARY ARTERY DISEASE [None]
  - BLADDER TAMPONADE [None]
  - MYOCARDIAL INFARCTION [None]
  - HYPERCHOLESTEROLAEMIA [None]
  - ANAEMIA [None]
